FAERS Safety Report 11203909 (Version 2)
Quarter: 2015Q3

REPORT INFORMATION
  Report Type: Spontaneous
  Country: US (occurrence: US)
  Receive Date: 20150619
  Receipt Date: 20150904
  Transmission Date: 20151125
  Serious: No
  Sender: FDA-Public Use
  Company Number: US-GLAXOSMITHKLINE-US2015086447

PATIENT
  Sex: Female

DRUGS (7)
  1. FENOFIBRATE. [Concomitant]
     Active Substance: FENOFIBRATE
  2. LISINOPRIL. [Concomitant]
     Active Substance: LISINOPRIL
  3. AMITIZA [Concomitant]
     Active Substance: LUBIPROSTONE
  4. ADVAIR DISKUS [Suspect]
     Active Substance: FLUTICASONE PROPIONATE\SALMETEROL XINAFOATE
     Indication: ASTHMA
     Dosage: 1 DF, BID
     Route: 065
     Dates: start: 2008
  5. VENTOLIN [Concomitant]
     Active Substance: ALBUTEROL SULFATE
  6. GABAPENTIN. [Concomitant]
     Active Substance: GABAPENTIN
  7. CARTIA XT [Concomitant]
     Active Substance: DILTIAZEM HYDROCHLORIDE

REACTIONS (3)
  - Drug ineffective [Recovered/Resolved]
  - Inhalation therapy [Unknown]
  - Product quality issue [Unknown]
